FAERS Safety Report 8694923 (Version 2)
Quarter: 2013Q1

REPORT INFORMATION
  Report Type: Spontaneous
  Country: LB (occurrence: LB)
  Receive Date: 20120731
  Receipt Date: 20130319
  Transmission Date: 20140127
  Serious: Yes (Death, Other)
  Sender: FDA-Public Use
  Company Number: PHHY2012LB065616

PATIENT
  Age: 77 Year
  Sex: Female

DRUGS (3)
  1. TASIGNA [Suspect]
     Indication: CHRONIC MYELOID LEUKAEMIA
     Dosage: 800 MG, DAILY
     Route: 048
     Dates: start: 20081001
  2. ORAL ANTIDIABETICS [Concomitant]
     Route: 048
  3. ANTIHYPERTENSIVES [Concomitant]

REACTIONS (2)
  - Myocardial infarction [Fatal]
  - Gangrene [Recovering/Resolving]
